FAERS Safety Report 18293303 (Version 1)
Quarter: 2020Q3

REPORT INFORMATION
  Report Type: Other
  Country: FR (occurrence: FR)
  Receive Date: 20200922
  Receipt Date: 20200922
  Transmission Date: 20201103
  Serious: Yes (Disabling, Other)
  Sender: FDA-Public Use
  Company Number: FR-ASTELLAS-2020US032460

PATIENT
  Age: 75 Year
  Sex: Male

DRUGS (6)
  1. PROGRAF [Suspect]
     Active Substance: TACROLIMUS
     Dosage: UNK UNK, UNKNOWN FREQ.
     Route: 065
  2. LERCANIDIPINE HYDROCHLORIDE [Suspect]
     Active Substance: LERCANIDIPINE HYDROCHLORIDE
     Indication: HYPERTENSION
     Dosage: 10 MG, 4 TIMES DAILY (10 MG 4X PER DAY)
     Route: 048
  3. BISOPROLOL FUMARATE. [Suspect]
     Active Substance: BISOPROLOL FUMARATE
     Indication: HYPERTENSION
     Dosage: 4 MG, ONCE DAILY (2.5MG + 1.5MG PER DAY)
     Route: 048
  4. FLUDEX [INDAPAMIDE] [Suspect]
     Active Substance: INDAPAMIDE
     Indication: HYPERTENSION
     Route: 048
  5. RILMENIDINE [Suspect]
     Active Substance: RILMENIDINE
     Indication: HYPERTENSION
     Dosage: 1 MG, TWICE DAILY (1 MG 2 X PER DAY)
     Route: 048
  6. PROGRAF [Suspect]
     Active Substance: TACROLIMUS
     Indication: PROPHYLAXIS AGAINST TRANSPLANT REJECTION
     Route: 048
     Dates: start: 1995

REACTIONS (4)
  - Proteinuria [Not Recovered/Not Resolved]
  - Chronic kidney disease [Not Recovered/Not Resolved]
  - Tubulointerstitial nephritis [Not Recovered/Not Resolved]
  - Glomerulonephropathy [Not Recovered/Not Resolved]

NARRATIVE: CASE EVENT DATE: 201906
